FAERS Safety Report 10979347 (Version 1)
Quarter: 2015Q2

REPORT INFORMATION
  Report Type: Spontaneous
  Country: PK (occurrence: PK)
  Receive Date: 20150402
  Receipt Date: 20150402
  Transmission Date: 20150821
  Serious: Yes (Hospitalization, Other)
  Sender: FDA-Public Use
  Company Number: PK-PFIZER INC-2015109394

PATIENT
  Age: 7 Year
  Sex: Female

DRUGS (2)
  1. LINCOMYCIN HCL [Suspect]
     Active Substance: LINCOMYCIN HYDROCHLORIDE
     Indication: RASH GENERALISED
     Dosage: SINGLE
     Route: 030
  2. LINCOMYCIN HCL [Suspect]
     Active Substance: LINCOMYCIN HYDROCHLORIDE
     Indication: PRURITUS GENERALISED

REACTIONS (1)
  - Paralysis [Recovered/Resolved]
